FAERS Safety Report 11825671 (Version 3)
Quarter: 2016Q1

REPORT INFORMATION
  Report Type: Spontaneous
  Country: US (occurrence: US)
  Receive Date: 20151211
  Receipt Date: 20160308
  Transmission Date: 20160525
  Serious: Yes (Other)
  Sender: FDA-Public Use
  Company Number: US-JNJFOC-20150805782

PATIENT
  Age: 87 Year
  Sex: Male
  Weight: 52 kg

DRUGS (16)
  1. IMBRUVICA [Suspect]
     Active Substance: IBRUTINIB
     Indication: CHRONIC LYMPHOCYTIC LEUKAEMIA
     Route: 048
     Dates: start: 20150523, end: 2015
  2. METHYLCELLULOSE [Concomitant]
     Active Substance: METHYLCELLULOSES
     Dosage: PO PACK, ONCE DAILY; 500 MG ORAL DAILY
  3. ACETAMINOPHEN AND DIPHENHYDRAMINE HYDROCHLORIDE [Concomitant]
     Active Substance: ACETAMINOPHEN\DIPHENHYDRAMINE HYDROCHLORIDE
     Indication: SLEEP DISORDER
     Dosage: 25-500 MG TABLET
     Route: 048
  4. ALBUTEROL. [Concomitant]
     Active Substance: ALBUTEROL
  5. ACETAMINOPHEN. [Concomitant]
     Active Substance: ACETAMINOPHEN
     Dosage: 1000 MG, PRN
     Route: 048
  6. OCEAN NASAL [Concomitant]
     Indication: NASAL DISCOMFORT
     Dosage: 0.65% NASAL SOLUTION
     Route: 045
  7. ULTRAM [Concomitant]
     Active Substance: TRAMADOL HYDROCHLORIDE
     Indication: PAIN
     Dosage: 50 MG EVERY SIX HOURS AS NEEDED
     Route: 048
  8. NORCO [Concomitant]
     Active Substance: ACETAMINOPHEN\HYDROCODONE BITARTRATE
     Indication: PAIN
     Dosage: 10-325 MG, 1 TABLET EVERY FOUR HOURS, AS NEEDED FOR PAIN
  9. MEVACOR [Concomitant]
     Active Substance: LOVASTATIN
     Dosage: 40 MG,QD
     Route: 048
  10. IMBRUVICA [Suspect]
     Active Substance: IBRUTINIB
     Indication: CHRONIC LYMPHOCYTIC LEUKAEMIA
     Route: 048
     Dates: start: 2015, end: 2015
  11. PROTONIX [Concomitant]
     Active Substance: PANTOPRAZOLE SODIUM
     Dosage: 40 MG, QD, BEFORE BREAKFAST
     Route: 048
  12. OCEAN NASAL [Concomitant]
     Indication: NASAL DRYNESS
     Dosage: 0.65% NASAL SOLUTION
     Route: 045
  13. ALBUTEROL. [Concomitant]
     Active Substance: ALBUTEROL
     Indication: DYSPNOEA
     Dosage: 2.5 MG/3ML, 0.083%, EVERY 4 HOURS
     Route: 055
  14. IPRATROPIUM BROMIDE W/SALBUTAMOL SULFATE [Concomitant]
     Indication: DYSPNOEA
     Dosage: 0.5-2.5 (3) MG/3 ML
     Route: 055
  15. TRIDESILON [Concomitant]
     Active Substance: ACETIC ACID\DESONIDE
     Indication: PEMPHIGOID
     Dosage: 0.05% CREAM; APPLY TO FACE AS NEEDED
  16. OCEAN NASAL [Concomitant]
     Indication: NASAL CONGESTION
     Dosage: 0.65% NASAL SOLUTION
     Route: 045

REACTIONS (8)
  - Myalgia [Not Recovered/Not Resolved]
  - Rash pruritic [Not Recovered/Not Resolved]
  - Pain in extremity [Unknown]
  - Malaise [Unknown]
  - Lung neoplasm malignant [Unknown]
  - Musculoskeletal stiffness [Unknown]
  - Fatigue [Not Recovered/Not Resolved]
  - Oedema peripheral [Unknown]

NARRATIVE: CASE EVENT DATE: 2015
